FAERS Safety Report 4978166-4 (Version None)
Quarter: 2006Q2

REPORT INFORMATION
  Report Type: 
  Country: None (occurrence: None)
  Receive Date: 20060420
  Receipt Date: 20050816
  Transmission Date: 20061013
  Serious: Yes (Hospitalization)
  Sender: FDA-Public Use
  Company Number: BE-BRISTOL-MYERS SQUIBB COMPANY-13086962

PATIENT
  Age: 61 Year
  Sex: Female

DRUGS (3)
  1. ERBITUX [Suspect]
     Indication: SQUAMOUS CELL CARCINOMA
     Dosage: MOST RECENT TX ON 09-AUG-05/PT HAD REC'D 5 INFUSIONS TO DATE/DOSE DELAYED ON 14-AUG-05/THEN REDUCED.
     Route: 041
     Dates: start: 20050712
  2. CISPLATIN [Suspect]
     Indication: SQUAMOUS CELL CARCINOMA
     Dosage: MOST RECENT INFUSION ON 02-AUG-05. PT HAD REC'D 2 INFUSIONS TO DATE.
     Route: 042
     Dates: start: 20050712
  3. FLUOROURACIL [Suspect]
     Indication: SQUAMOUS CELL CARCINOMA
     Dosage: MOST RECENT INFUSION ON 02-AUG-05.  PT HAD REC'D 2 INFUSIONS TO DATE.
     Route: 042
     Dates: start: 20050712

REACTIONS (3)
  - HYPOCALCAEMIA [None]
  - HYPOKALAEMIA [None]
  - HYPOMAGNESAEMIA [None]
